FAERS Safety Report 5964518-2 (Version None)
Quarter: 2008Q4

REPORT INFORMATION
  Report Type: 
  Country: None (occurrence: None)
  Receive Date: 20081125
  Receipt Date: 20081117
  Transmission Date: 20090506
  Serious: No
  Sender: FDA-Public Use
  Company Number: GB-JNJFOC-20080906770

PATIENT
  Age: 59 Year
  Sex: Male

DRUGS (9)
  1. DURAGESIC-100 [Suspect]
     Route: 062
  2. DURAGESIC-100 [Suspect]
     Route: 062
  3. DURAGESIC-100 [Suspect]
     Indication: BACK PAIN
     Route: 062
  4. AMLODIPINE [Concomitant]
     Indication: BLOOD PRESSURE ABNORMAL
  5. ACETAMINOPHEN W/ CODEINE [Concomitant]
     Indication: BACK PAIN
  6. MOVICOL [Concomitant]
     Indication: BACK PAIN
  7. MELOXICAM [Concomitant]
     Indication: BACK PAIN
  8. TRAMADOL HCL [Concomitant]
     Indication: BACK PAIN
  9. PREGABALIN [Concomitant]
     Indication: BACK PAIN

REACTIONS (2)
  - DRUG INEFFECTIVE [None]
  - INAPPROPRIATE SCHEDULE OF DRUG ADMINISTRATION [None]
